FAERS Safety Report 14407007 (Version 2)
Quarter: 2018Q1

REPORT INFORMATION
  Report Type: Report from Study
  Country: FR (occurrence: FR)
  Receive Date: 20180118
  Receipt Date: 20180208
  Transmission Date: 20180509
  Serious: Yes (Hospitalization, Other)
  Sender: FDA-Public Use
  Company Number: FR-IPSEN BIOPHARMACEUTICALS, INC.-2018-00806

PATIENT
  Age: 69 Year
  Sex: Female

DRUGS (11)
  1. PEGYLATED LIPOSOMAL IRINOTECAN [Suspect]
     Active Substance: IRINOTECAN HYDROCHLORIDE
     Indication: COLORECTAL CANCER METASTATIC
     Dosage: REGIMEN 1
     Route: 042
  2. FOLINIC ACID [Suspect]
     Active Substance: LEUCOVORIN
     Dosage: REGIMEN 2
     Route: 042
  3. FLUOROURACIL. [Suspect]
     Active Substance: FLUOROURACIL
     Indication: COLORECTAL CANCER METASTATIC
     Route: 042
  4. AFLIBERCEPT [Suspect]
     Active Substance: AFLIBERCEPT
     Dosage: REGIMEN 1
     Route: 042
     Dates: start: 20170915, end: 20170915
  5. FOLINIC ACID [Suspect]
     Active Substance: LEUCOVORIN
     Indication: COLORECTAL CANCER METASTATIC
     Dosage: REGIMEN 1
     Route: 042
     Dates: start: 20170703, end: 20170703
  6. FLUOROURACIL. [Suspect]
     Active Substance: FLUOROURACIL
     Dosage: REGIMEN 1
     Route: 042
  7. PEGYLATED LIPOSOMAL IRINOTECAN [Suspect]
     Active Substance: IRINOTECAN HYDROCHLORIDE
     Indication: OFF LABEL USE
     Dosage: REGIMEN 2
     Route: 042
     Dates: start: 20170703, end: 20170703
  8. AFLIBERCEPT [Suspect]
     Active Substance: AFLIBERCEPT
     Indication: COLORECTAL CANCER METASTATIC
     Dosage: REGIMEN 2
     Route: 042
     Dates: start: 20170703, end: 20170703
  9. FOLINIC ACID [Suspect]
     Active Substance: LEUCOVORIN
     Dosage: REGIMEN 3
     Route: 042
  10. PEGYLATED LIPOSOMAL IRINOTECAN [Suspect]
     Active Substance: IRINOTECAN HYDROCHLORIDE
     Dosage: REGIMEN 1
     Route: 042
  11. FLUOROURACIL. [Suspect]
     Active Substance: FLUOROURACIL
     Dosage: REGIMEN 2
     Route: 042
     Dates: start: 20170703, end: 20170703

REACTIONS (2)
  - Off label use [Unknown]
  - Vena cava thrombosis [Recovered/Resolved]

NARRATIVE: CASE EVENT DATE: 20170915
